FAERS Safety Report 6846862-X (Version None)
Quarter: 2010Q3

REPORT INFORMATION
  Report Type: 
  Country: None (occurrence: None)
  Receive Date: 20100715
  Receipt Date: 20070925
  Transmission Date: 20110219
  Serious: No
  Sender: FDA-Public Use
  Company Number: US-PFIZER INC-2007080241

PATIENT
  Sex: Female
  Weight: 67.272 kg

DRUGS (5)
  1. CHANTIX [Suspect]
     Indication: SMOKING CESSATION THERAPY
     Dates: start: 20070918
  2. DEPAKOTE [Concomitant]
     Indication: BIPOLAR DISORDER
  3. LEXAPRO [Concomitant]
     Indication: BIPOLAR DISORDER
  4. BUPRENORPHINE HCL AND NALOXONE HCL [Concomitant]
  5. TOPAMAX [Concomitant]

REACTIONS (1)
  - NAUSEA [None]
